FAERS Safety Report 18923723 (Version 2)
Quarter: 2021Q2

REPORT INFORMATION
  Report Type: Report from Study
  Country: US (occurrence: US)
  Receive Date: 20210222
  Receipt Date: 20210610
  Transmission Date: 20210717
  Serious: Yes (Other)
  Sender: FDA-Public Use
  Company Number: US-TAKEDA-2021TUS010045

PATIENT
  Sex: Male
  Weight: 83.9 kg

DRUGS (13)
  1. HUMAN NORMAL IMMUNOGLOBULIN; LIQUID [Suspect]
     Active Substance: HUMAN IMMUNOGLOBULIN G
     Indication: ENCEPHALOPATHY
     Dosage: 20 GRAM, Q2WEEKS
     Route: 042
     Dates: start: 20190812
  2. AZITHROMYCIN ANHYDROUS. [Concomitant]
     Active Substance: AZITHROMYCIN ANHYDROUS
  3. CURCUMIN [Concomitant]
     Active Substance: CURCUMIN
  4. VITAMIN D3 [Concomitant]
     Active Substance: CHOLECALCIFEROL
  5. LIOTHYRONINE [Concomitant]
     Active Substance: LIOTHYRONINE
  6. HYDROCORTISONE. [Concomitant]
     Active Substance: HYDROCORTISONE
  7. ARTEMISIA ARGYI [Concomitant]
  8. ATOVAQUONE. [Concomitant]
     Active Substance: ATOVAQUONE
  9. NALTREXONE [Concomitant]
     Active Substance: NALTREXONE
  10. RIFAMPIN. [Concomitant]
     Active Substance: RIFAMPIN
  11. CULTURELLE [Concomitant]
     Active Substance: LACTOBACILLUS RHAMNOSUS
  12. CANNABIDIOL [Concomitant]
     Active Substance: CANNABIDIOL
  13. METHYLCOBALAMIN. [Concomitant]
     Active Substance: METHYLCOBALAMIN

REACTIONS (3)
  - Lyme disease [Unknown]
  - Diarrhoea [Unknown]
  - Weight fluctuation [Unknown]
